FAERS Safety Report 24056716 (Version 3)
Quarter: 2025Q2

REPORT INFORMATION
  Report Type: Spontaneous
  Country: US (occurrence: US)
  Receive Date: 20240705
  Receipt Date: 20250430
  Transmission Date: 20250716
  Serious: Yes (Other)
  Sender: AMGEN
  Company Number: US-AMGEN-USASP2024129291

PATIENT
  Sex: Female

DRUGS (11)
  1. OTEZLA [Suspect]
     Active Substance: APREMILAST
     Indication: Behcet^s syndrome
     Dosage: 30 MILLIGRAM, BID (2 TIMES EVERY DAY APPROXIMATELY 12 HOURS APART)
     Route: 048
     Dates: start: 20240702
  2. ERRIN [Concomitant]
     Active Substance: NORETHINDRONE
     Route: 065
  3. Bd posiflush [Concomitant]
  4. COLCHICINE [Concomitant]
     Active Substance: COLCHICINE
  5. DEXAMETHASONE SODIUM PHOSPHATE [Concomitant]
     Active Substance: DEXAMETHASONE SODIUM PHOSPHATE
  6. DEXAMETHASONE SODIUM PHOSPHATE [Concomitant]
     Active Substance: DEXAMETHASONE SODIUM PHOSPHATE
  7. DIPHENHYDRAMINE [Concomitant]
     Active Substance: DIPHENHYDRAMINE
  8. GAMMAKED [Concomitant]
     Active Substance: HUMAN IMMUNOGLOBULIN G
  9. HUMIRA [Concomitant]
     Active Substance: ADALIMUMAB
  10. JENCYCLA [Concomitant]
     Active Substance: NORETHINDRONE
  11. SIMLANDI [Concomitant]
     Active Substance: ADALIMUMAB-RYVK

REACTIONS (2)
  - Behcet^s syndrome [Not Recovered/Not Resolved]
  - Upper respiratory tract infection [Unknown]
